FAERS Safety Report 10019549 (Version 3)
Quarter: 2014Q1

REPORT INFORMATION
  Report Type: Report from Study
  Country: GB (occurrence: GB)
  Receive Date: 20140318
  Receipt Date: 20140326
  Transmission Date: 20141002
  Serious: Yes (Hospitalization)
  Sender: FDA-Public Use
  Company Number: GB-GILEAD-2014-0093746

PATIENT
  Age: 68 Year
  Sex: Female
  Weight: 76.6 kg

DRUGS (4)
  1. AMBRISENTAN [Suspect]
     Indication: PULMONARY ARTERIAL HYPERTENSION
     Dosage: 10 MG, QD
     Route: 048
     Dates: start: 20111206
  2. TADALAFIL [Suspect]
     Indication: PULMONARY ARTERIAL HYPERTENSION
     Dosage: 1 DF, QD
     Route: 048
     Dates: start: 20120912
  3. PLACEBO [Suspect]
     Indication: PULMONARY ARTERIAL HYPERTENSION
     Dosage: UNK
     Dates: start: 20111206, end: 20130911
  4. CLOPIDOGREL [Concomitant]
     Indication: CARDIAC FAILURE CONGESTIVE
     Dosage: 75MG PER DAY
     Route: 048
     Dates: start: 201205, end: 20140127

REACTIONS (1)
  - Rectal haemorrhage [Recovered/Resolved]
